FAERS Safety Report 8308175-9 (Version None)
Quarter: 2012Q2

REPORT INFORMATION
  Report Type: 
  Country: None (occurrence: None)
  Receive Date: 20120424
  Receipt Date: 20120419
  Transmission Date: 20120825
  Serious: Yes (Other)
  Sender: FDA-Public Use
  Company Number: DE-ROCHE-1046091

PATIENT
  Sex: Male
  Weight: 95 kg

DRUGS (4)
  1. SIMVASTATIN [Concomitant]
  2. VALSARTAN [Concomitant]
  3. ROFERON-A [Suspect]
     Indication: MALIGNANT MELANOMA
     Dosage: STRENGTH: 4.5 MIO IU
  4. APIDRA [Concomitant]

REACTIONS (1)
  - BLISTER [None]
